FAERS Safety Report 4479078-5 (Version None)
Quarter: 2004Q4

REPORT INFORMATION
  Report Type: 
  Country: None (occurrence: None)
  Receive Date: 20041015
  Receipt Date: 20040928
  Transmission Date: 20050328
  Serious: Yes (Other)
  Sender: FDA-Public Use
  Company Number: 2004235877IT

PATIENT
  Age: 43 Year
  Sex: Female

DRUGS (2)
  1. SOLU-MEDROL [Suspect]
     Dosage: 7.5 MG/KG, QD, IV
     Route: 042
  2. LEVOTHYROXINE SODIUM [Concomitant]

REACTIONS (1)
  - AUTOIMMUNE HEPATITIS [None]
